FAERS Safety Report 7582195-4 (Version None)
Quarter: 2011Q2

REPORT INFORMATION
  Report Type: 
  Country: None (occurrence: None)
  Receive Date: 20110630
  Receipt Date: 20110623
  Transmission Date: 20111010
  Serious: Yes (Death)
  Sender: FDA-Public Use
  Company Number: JP-AMGEN-JPNSP2011028364

PATIENT
  Age: 75 Year
  Sex: Male
  Weight: 45 kg

DRUGS (8)
  1. BUCILLAMINE [Concomitant]
     Dosage: 200 MG, QD
     Route: 048
     Dates: start: 20030101, end: 20051228
  2. VOLTAREN [Concomitant]
     Indication: RHEUMATOID ARTHRITIS
     Dosage: UNK
     Route: 061
  3. CYTOTEC [Concomitant]
     Dosage: UNK
     Route: 048
  4. OPALMON [Concomitant]
     Dosage: UNK
     Route: 048
  5. ENBREL [Suspect]
     Indication: RHEUMATOID ARTHRITIS
     Dosage: 25 MG, WEEKLY
     Dates: start: 20051027, end: 20051221
  6. ALENDRONATE SODIUM [Concomitant]
     Indication: OSTEOPOROSIS
     Dosage: UNK
     Route: 048
  7. PREDNISOLONE [Concomitant]
     Indication: RHEUMATOID ARTHRITIS
     Dosage: 5 MG, QD
     Route: 048
  8. VOLTAREN [Concomitant]
     Dosage: UNK
     Route: 054

REACTIONS (3)
  - IMPAIRED HEALING [None]
  - ANASTOMOTIC COMPLICATION [None]
  - PERITONITIS [None]
